FAERS Safety Report 16010191 (Version 1)
Quarter: 2019Q1

REPORT INFORMATION
  Report Type: Spontaneous
  Country: NL (occurrence: NL)
  Receive Date: 20190227
  Receipt Date: 20190227
  Transmission Date: 20190418
  Serious: Yes (Other)
  Sender: FDA-Public Use
  Company Number: NL-AUROBINDO-AUR-APL-2019-009788

PATIENT

DRUGS (1)
  1. OXYCODONE [Suspect]
     Active Substance: OXYCODONE
     Indication: PAIN
     Dosage: UNK
     Route: 065

REACTIONS (8)
  - Drug diversion [Unknown]
  - Dizziness [Unknown]
  - Pain [Unknown]
  - Drug dependence [Unknown]
  - Euphoric mood [Unknown]
  - Vomiting [Unknown]
  - Pyrexia [Unknown]
  - Withdrawal syndrome [Unknown]
